FAERS Safety Report 8716089 (Version 2)
Quarter: 2012Q4

REPORT INFORMATION
  Report Type: 
  Country: US (occurrence: US)
  Receive Date: 20120809
  Receipt Date: 20121211
  Transmission Date: 20130627
  Serious: Yes (Other)
  Sender: FDA-Public Use
  Company Number: US-BAXTER-2012BAX013662

PATIENT
  Sex: Female

DRUGS (7)
  1. GAMMAGARD LIQUID [Suspect]
     Indication: DRUG USE FOR UNKNOWN INDICATION
     Dates: start: 201203
  2. NORCO [Concomitant]
     Indication: DRUG USE FOR UNKNOWN INDICATION
  3. ZANAFLEX [Concomitant]
     Indication: DRUG USE FOR UNKNOWN INDICATION
  4. PROMETHAZINE [Concomitant]
     Indication: DRUG USE FOR UNKNOWN INDICATION
  5. MOBIC [Concomitant]
     Indication: DRUG USE FOR UNKNOWN INDICATION
  6. NORTRIPTYLINE [Concomitant]
     Indication: DRUG USE FOR UNKNOWN INDICATION
  7. XANAX [Concomitant]
     Indication: DRUG USE FOR UNKNOWN INDICATION

REACTIONS (6)
  - Influenza like illness [Unknown]
  - Rash [Unknown]
  - Papule [Unknown]
  - Metabolic disorder [Unknown]
  - Blister [Not Recovered/Not Resolved]
  - Skin sensitisation [Not Recovered/Not Resolved]
